FAERS Safety Report 19826618 (Version 1)
Quarter: 2021Q3

REPORT INFORMATION
  Report Type: Spontaneous
  Country: US (occurrence: US)
  Receive Date: 20210914
  Receipt Date: 20210914
  Transmission Date: 20211014
  Serious: Yes (Hospitalization)
  Sender: FDA-Public Use
  Company Number: None

PATIENT
  Age: 18 Year
  Sex: Female

DRUGS (4)
  1. TRAZADONE TAB 50MG [Concomitant]
     Dates: start: 20210819
  2. DESVENLAFAX TAB 25MG ER [Concomitant]
     Dates: start: 20210713
  3. HUMIRA [Suspect]
     Active Substance: ADALIMUMAB
     Indication: RHEUMATOID ARTHRITIS
     Dosage: ?          OTHER FREQUENCY:EVERY WEEK;?
     Route: 058
     Dates: start: 20210313
  4. KETOCONAZOLE SHA 2% [Concomitant]
     Dates: start: 20210823

REACTIONS (1)
  - Eating disorder [None]

NARRATIVE: CASE EVENT DATE: 20210908
